FAERS Safety Report 16425085 (Version 1)
Quarter: 2019Q2

REPORT INFORMATION
  Report Type: Spontaneous
  Country: NO (occurrence: NO)
  Receive Date: 20190613
  Receipt Date: 20190613
  Transmission Date: 20190711
  Serious: Yes (Other)
  Sender: FDA-Public Use
  Company Number: NO-SA-2019SA154337

PATIENT
  Sex: Female

DRUGS (5)
  1. LEMTRADA [Suspect]
     Active Substance: ALEMTUZUMAB
     Indication: RELAPSING-REMITTING MULTIPLE SCLEROSIS
     Dosage: UNK, UNK
     Route: 065
     Dates: start: 201803
  2. BETAFERON [Concomitant]
     Active Substance: INTERFERON BETA-1B
     Dosage: UNK UNK, UNK
  3. LEMTRADA [Suspect]
     Active Substance: ALEMTUZUMAB
     Dosage: UNK, UNK
     Route: 065
     Dates: start: 201606
  4. SOLU-MEDROL [Concomitant]
     Active Substance: METHYLPREDNISOLONE SODIUM SUCCINATE
     Dosage: UNK UNK, UNK
  5. LEMTRADA [Suspect]
     Active Substance: ALEMTUZUMAB
     Dosage: UNK, UNK
     Route: 065
     Dates: start: 201506

REACTIONS (7)
  - Basedow^s disease [Unknown]
  - Hypothyroidism [Unknown]
  - Thyroxine decreased [Unknown]
  - Pregnancy [Unknown]
  - Abortion [Unknown]
  - Anti-thyroid antibody positive [Unknown]
  - Blood thyroid stimulating hormone decreased [Unknown]

NARRATIVE: CASE EVENT DATE: 201803
